FAERS Safety Report 9564166 (Version 1)
Quarter: 2013Q3

REPORT INFORMATION
  Report Type: Spontaneous
  Country: AU (occurrence: AU)
  Receive Date: 20130930
  Receipt Date: 20130930
  Transmission Date: 20140515
  Serious: Yes (Life-Threatening)
  Sender: FDA-Public Use
  Company Number: AU-AMGEN-AUSSP2013067024

PATIENT
  Age: 85 Year
  Sex: Female

DRUGS (1)
  1. PROLIA [Suspect]
     Indication: OSTEOPOROSIS
     Dosage: 1 DOSE UNSPECIFIED
     Route: 058

REACTIONS (2)
  - Electrocardiogram QT prolonged [Recovered/Resolved]
  - Hypocalcaemia [Recovered/Resolved]
